FAERS Safety Report 10230024 (Version 1)
Quarter: 2014Q2

REPORT INFORMATION
  Report Type: Spontaneous
  Country: US (occurrence: None)
  Receive Date: 20140610
  Receipt Date: 20140610
  Transmission Date: 20141212
  Serious: Yes (Life-Threatening, Hospitalization)
  Sender: FDA-Public Use
  Company Number: None

PATIENT
  Age: 56 Year
  Sex: Female
  Weight: 50.1 kg

DRUGS (3)
  1. FARXIGA [Suspect]
     Indication: TYPE 2 DIABETES MELLITUS
     Dosage: 1 TABLET, QD, ORAL
     Route: 048
  2. LISINOPRIL-HCTZ 20 [Concomitant]
  3. GLIPIZIDE [Concomitant]

REACTIONS (7)
  - Dyspnoea [None]
  - Fatigue [None]
  - General physical health deterioration [None]
  - Presyncope [None]
  - Acidosis [None]
  - Acid base balance abnormal [None]
  - Haemodialysis [None]
